FAERS Safety Report 12334842 (Version 2)
Quarter: 2016Q2

REPORT INFORMATION
  Report Type: Spontaneous
  Country: US (occurrence: US)
  Receive Date: 20160504
  Receipt Date: 20160531
  Transmission Date: 20160815
  Serious: Yes (Hospitalization)
  Sender: FDA-Public Use
  Company Number: US-B.I. PHARMACEUTICALS,INC./RIDGEFIELD-2016-BI-26886BP

PATIENT
  Age: 66 Year
  Sex: Male

DRUGS (2)
  1. SPIRIVA [Suspect]
     Active Substance: TIOTROPIUM BROMIDE MONOHYDRATE
     Indication: CHRONIC OBSTRUCTIVE PULMONARY DISEASE
     Dosage: 18 MCG
     Route: 055
     Dates: start: 2001, end: 2007
  2. SPIRIVA [Suspect]
     Active Substance: TIOTROPIUM BROMIDE MONOHYDRATE
     Dosage: 18 MCG
     Route: 055
     Dates: start: 201601

REACTIONS (6)
  - Product quality issue [Unknown]
  - Flushing [Recovered/Resolved]
  - Loss of consciousness [Recovered/Resolved]
  - Total lung capacity increased [Unknown]
  - Oxygen saturation decreased [Recovered/Resolved]
  - Dyspnoea [Not Recovered/Not Resolved]

NARRATIVE: CASE EVENT DATE: 2014
